FAERS Safety Report 9714094 (Version 2)
Quarter: 2015Q3

REPORT INFORMATION
  Report Type: Spontaneous
  Country: US (occurrence: US)
  Receive Date: 20131126
  Receipt Date: 20150803
  Transmission Date: 20151125
  Serious: No
  Sender: FDA-Public Use
  Company Number: US-GILEAD-2008-0018814

PATIENT
  Age: 67 Year
  Sex: Female

DRUGS (12)
  1. ASPIRIN. [Concomitant]
     Active Substance: ASPIRIN
     Route: 048
  2. LIPITOR [Concomitant]
     Active Substance: ATORVASTATIN CALCIUM
     Route: 048
  3. METOPROLOL ER [Concomitant]
     Active Substance: METOPROLOL SUCCINATE
     Route: 048
  4. PLAVIX [Concomitant]
     Active Substance: CLOPIDOGREL BISULFATE
     Route: 048
  5. LETAIRIS [Suspect]
     Active Substance: AMBRISENTAN
     Route: 048
     Dates: start: 200810
  6. PREDNISONE. [Concomitant]
     Active Substance: PREDNISONE
     Route: 048
  7. GABAPENTIN. [Concomitant]
     Active Substance: GABAPENTIN
     Route: 048
  8. LETAIRIS [Suspect]
     Active Substance: AMBRISENTAN
     Route: 048
     Dates: start: 20080709, end: 20081021
  9. FUROSEMIDE. [Concomitant]
     Active Substance: FUROSEMIDE
     Route: 048
  10. REVATIO [Concomitant]
     Active Substance: SILDENAFIL CITRATE
     Route: 048
  11. LETAIRIS [Suspect]
     Active Substance: AMBRISENTAN
     Indication: PULMONARY ARTERIAL HYPERTENSION
     Route: 048
  12. NEXIUM [Concomitant]
     Active Substance: ESOMEPRAZOLE MAGNESIUM
     Route: 048

REACTIONS (1)
  - Fluid retention [Not Recovered/Not Resolved]

NARRATIVE: CASE EVENT DATE: 20080710
